FAERS Safety Report 25078934 (Version 1)
Quarter: 2025Q1

REPORT INFORMATION
  Report Type: Spontaneous
  Country: US (occurrence: US)
  Receive Date: 20250314
  Receipt Date: 20250314
  Transmission Date: 20250409
  Serious: No
  Sender: ITALFARMACO SPA
  Company Number: US-ITALFARMACO SPA-2172897

PATIENT
  Age: 11 Year
  Sex: Male
  Weight: 27.22 kg

DRUGS (6)
  1. DUVYZAT [Suspect]
     Active Substance: GIVINOSTAT
     Indication: Duchenne muscular dystrophy
     Dates: start: 20241219
  2. COD LIVER OIL [Concomitant]
     Active Substance: COD LIVER OIL
  3. LISINOPRIL [Concomitant]
     Active Substance: LISINOPRIL
  4. SPIRONOLACTONE [Concomitant]
     Active Substance: SPIRONOLACTONE
  5. PREDNISONE [Concomitant]
     Active Substance: PREDNISONE
  6. CHOLECALCIFEROL [Concomitant]
     Active Substance: CHOLECALCIFEROL

REACTIONS (2)
  - Platelet count decreased [Unknown]
  - Off label use [Unknown]
